FAERS Safety Report 9359701 (Version 2)
Quarter: 2013Q3

REPORT INFORMATION
  Report Type: Spontaneous
  Country: DZ (occurrence: DZ)
  Receive Date: 20130621
  Receipt Date: 20130703
  Transmission Date: 20140515
  Serious: Yes (Death)
  Sender: FDA-Public Use
  Company Number: DZ-ROCHE-1237987

PATIENT
  Age: 51 Year
  Sex: Male

DRUGS (6)
  1. ALTEPLASE [Suspect]
     Indication: ACUTE MYOCARDIAL INFARCTION
     Dosage: DAILY DOSE (10-50-40 MG)
     Route: 042
     Dates: start: 20130521, end: 20130521
  2. ASPIRIN [Concomitant]
     Route: 048
  3. LOVENOX [Concomitant]
     Dosage: 0.1 MG/10 KG/12 HR
     Route: 065
  4. PLAVIX [Concomitant]
  5. COAPROVEL [Concomitant]
  6. AVLOCARDYL [Concomitant]

REACTIONS (5)
  - Gingival bleeding [Fatal]
  - Haematuria [Fatal]
  - Meningorrhagia [Fatal]
  - Cardiac ventricular disorder [Fatal]
  - Death [Fatal]
